FAERS Safety Report 6201888-4 (Version None)
Quarter: 2009Q2

REPORT INFORMATION
  Report Type: 
  Country: None (occurrence: None)
  Receive Date: 20090526
  Receipt Date: 20090514
  Transmission Date: 20091009
  Serious: Yes (Other)
  Sender: FDA-Public Use
  Company Number: US-PFIZER INC-2005040057

PATIENT
  Sex: Female

DRUGS (8)
  1. PROVERA [Suspect]
     Indication: HORMONE REPLACEMENT THERAPY
     Dosage: UNK
     Route: 065
     Dates: start: 19890101, end: 19960101
  2. PROVERA [Suspect]
     Indication: MENOPAUSE
  3. PREMPRO [Suspect]
     Indication: HORMONE REPLACEMENT THERAPY
     Dosage: UNK
     Route: 065
     Dates: start: 19960101, end: 20010101
  4. PREMPRO [Suspect]
     Indication: MENOPAUSE
  5. PREMARIN [Suspect]
     Indication: HORMONE REPLACEMENT THERAPY
     Dosage: UNK
     Dates: start: 19890101, end: 19960101
  6. PREMARIN [Suspect]
     Indication: MENOPAUSE
  7. SYNTHROID [Concomitant]
     Indication: HYPOTHYROIDISM
     Dosage: 0.1 MG, UNK
     Dates: start: 19840101
  8. ALDACTONE [Concomitant]
     Indication: FLUID RETENTION
     Dosage: UNK
     Dates: start: 19750101

REACTIONS (1)
  - BREAST CANCER FEMALE [None]
